FAERS Safety Report 6166415-9 (Version None)
Quarter: 2009Q2

REPORT INFORMATION
  Report Type: 
  Country: None (occurrence: None)
  Receive Date: 20090424
  Receipt Date: 20090327
  Transmission Date: 20091009
  Serious: No
  Sender: FDA-Public Use
  Company Number: US-BAYER-200916795NA

PATIENT
  Age: 24 Year
  Sex: Female
  Weight: 52 kg

DRUGS (1)
  1. MIRENA [Suspect]
     Indication: CONTRACEPTION
     Dosage: CONTINUOUS
     Route: 015

REACTIONS (2)
  - DEVICE BREAKAGE [None]
  - PREGNANCY WITH CONTRACEPTIVE DEVICE [None]
